FAERS Safety Report 9523310 (Version 3)
Quarter: 2013Q4

REPORT INFORMATION
  Report Type: Spontaneous
  Country: US (occurrence: US)
  Receive Date: 20130913
  Receipt Date: 20131111
  Transmission Date: 20140711
  Serious: Yes (Death, Life-Threatening, Hospitalization, Disabling, Other)
  Sender: FDA-Public Use
  Company Number: US-009507513-1309USA004601

PATIENT
  Age: 49 Year
  Sex: Male

DRUGS (2)
  1. TEMODAR [Suspect]
     Indication: PANCREATIC NEUROENDOCRINE TUMOUR
     Dosage: PATIENT TOOK 7 250MG TABLETS PER DAY FOR 7 DAYS
     Route: 048
     Dates: start: 20130828, end: 20130904
  2. BEVACIZUMAB [Concomitant]

REACTIONS (19)
  - Death [Fatal]
  - Aphagia [Recovering/Resolving]
  - White blood cell count abnormal [Recovering/Resolving]
  - Lung disorder [Unknown]
  - Blood phosphorus abnormal [Recovering/Resolving]
  - Malnutrition [Recovering/Resolving]
  - Prealbumin abnormal [Recovering/Resolving]
  - Renal impairment [Recovering/Resolving]
  - Haemoglobin decreased [Recovering/Resolving]
  - Stomatitis [Recovering/Resolving]
  - Bacteraemia [Recovering/Resolving]
  - Accidental overdose [Unknown]
  - Neutropenia [Recovering/Resolving]
  - Prescribed overdose [Unknown]
  - Rash [Recovering/Resolving]
  - Aspartate aminotransferase increased [Recovering/Resolving]
  - Pulmonary oedema [Unknown]
  - Donor leukocyte infusion [Unknown]
  - Platelet transfusion [Unknown]
